FAERS Safety Report 18241223 (Version 1)
Quarter: 2020Q3

REPORT INFORMATION
  Report Type: Spontaneous
  Country: US (occurrence: US)
  Receive Date: 20200906
  Receipt Date: 20200906
  Transmission Date: 20201103
  Serious: Yes (Other)
  Sender: FDA-Public Use
  Company Number: None

PATIENT
  Age: 63 Day
  Sex: Female
  Weight: 96.75 kg

DRUGS (1)
  1. LEVOCETIRIZINE [Suspect]
     Active Substance: LEVOCETIRIZINE
     Indication: HYPERSENSITIVITY
     Dosage: ?          QUANTITY:30 TABLET(S);?
     Route: 048
     Dates: start: 20170913

REACTIONS (8)
  - Skin burning sensation [None]
  - Migraine [None]
  - Eye irritation [None]
  - Influenza like illness [None]
  - Pruritus [None]
  - Abdominal discomfort [None]
  - Insomnia [None]
  - Therapy interrupted [None]

NARRATIVE: CASE EVENT DATE: 20200904
